FAERS Safety Report 11508306 (Version 1)
Quarter: 2015Q3

REPORT INFORMATION
  Report Type: Spontaneous
  Country: US (occurrence: US)
  Receive Date: 20150915
  Receipt Date: 20150915
  Transmission Date: 20151125
  Serious: Yes (Other)
  Sender: FDA-Public Use
  Company Number: US-AMGEN-USASP2015089021

PATIENT
  Age: 88 Year
  Sex: Female

DRUGS (1)
  1. PROLIA [Suspect]
     Active Substance: DENOSUMAB
     Indication: PRODUCT USED FOR UNKNOWN INDICATION
     Dosage: UNK
     Route: 065

REACTIONS (14)
  - Genital infection [Unknown]
  - Oral pain [Unknown]
  - Eye infection [Unknown]
  - Genital rash [Unknown]
  - Eczema [Unknown]
  - Cardiac operation [Unknown]
  - Fungal infection [Unknown]
  - Infection [Unknown]
  - Discomfort [Unknown]
  - Pain in extremity [Unknown]
  - Gingival disorder [Unknown]
  - Emotional distress [Unknown]
  - Pollakiuria [Unknown]
  - Arthralgia [Unknown]
